FAERS Safety Report 24042108 (Version 2)
Quarter: 2024Q3

REPORT INFORMATION
  Report Type: Report from Study
  Country: US (occurrence: US)
  Receive Date: 20240702
  Receipt Date: 20240919
  Transmission Date: 20241017
  Serious: Yes (Other)
  Sender: ABBVIE
  Company Number: US-ABBVIE-5819564

PATIENT
  Age: 51 Year
  Sex: Female
  Weight: 158 kg

DRUGS (37)
  1. LINZESS [Suspect]
     Active Substance: LINACLOTIDE
     Indication: Constipation
     Dosage: FORM STRENGTH: 290 MICROGRAM
     Route: 048
     Dates: start: 20190918
  2. ALBUTEROL SULFATE [Concomitant]
     Active Substance: ALBUTEROL SULFATE
     Indication: Product used for unknown indication
     Dosage: TIME INTERVAL: 0.33333333 DAYS: FORM STRENGTH: 2.5 MG/3 ML (0.083 %)
     Route: 065
     Dates: start: 20221109
  3. ALLOPURINOL [Concomitant]
     Active Substance: ALLOPURINOL
     Indication: Product used for unknown indication
     Dosage: TAKE ONE (1) TABLET(S) BY MOUTH ONCE A DAY.
     Route: 048
     Dates: start: 20240622
  4. AMITRIPTYLINE [Concomitant]
     Active Substance: AMITRIPTYLINE
     Indication: Product used for unknown indication
     Dosage: TAKE ONE (1) TABLET(S) BY MOUTH THREE TIMES A DAY
     Route: 048
     Dates: start: 20240302
  5. ASPIRIN [Concomitant]
     Active Substance: ASPIRIN
     Indication: Product used for unknown indication
     Route: 048
     Dates: start: 20240606
  6. BUSPIRONE [Concomitant]
     Active Substance: BUSPIRONE HYDROCHLORIDE
     Indication: Product used for unknown indication
     Route: 048
     Dates: start: 20240217
  7. CEPHALEXIN [Concomitant]
     Active Substance: CEPHALEXIN
     Indication: Product used for unknown indication
     Dosage: TAKE TWO (2) TABLET(S) BY MOUTH TWICE A DAY FOR 5 DAYS.
     Route: 048
     Dates: start: 20240712
  8. ESTRADIOL [Concomitant]
     Active Substance: ESTRADIOL
     Indication: Product used for unknown indication
     Dosage: TIME INTERVAL: 0.33333333 WEEKS: INSERT 1 APPLICATORFUL VAGINALLY (1 GRAM) EVERY NIGHT AT BEDTIME...
     Route: 067
     Dates: start: 20240226
  9. FLECAINIDE [Concomitant]
     Active Substance: FLECAINIDE
     Indication: Product used for unknown indication
     Dosage: TAKE ONE (1) TABLET EVERY 12 HOURS BY MOUTH.
     Route: 048
  10. SYNTHROID [Concomitant]
     Active Substance: LEVOTHYROXINE SODIUM
     Indication: Product used for unknown indication
     Dosage: TAKE ONE TABLET BY MOUTH EVERY MORNING ON AN EMPTY STOMACH
     Route: 048
     Dates: start: 20240319
  11. TIZANIDINE [Concomitant]
     Active Substance: TIZANIDINE
     Indication: Product used for unknown indication
     Dosage: TAKE ONE (1) TO TWO (2) TA^ BLET(S) BY MOUTH EVERY 6 HOURS AS NEEDED.
     Route: 048
     Dates: start: 20230616
  12. TOVIAZ [Concomitant]
     Active Substance: FESOTERODINE FUMARATE
     Indication: Product used for unknown indication
     Dosage: TAKE 1 TABLET EVERY DAY BY ORAL ROUTE FOR 30 DAYS
     Route: 048
     Dates: start: 20191126
  13. TRAMADOL [Concomitant]
     Active Substance: TRAMADOL\TRAMADOL HYDROCHLORIDE
     Indication: Product used for unknown indication
     Dosage: TAKE ONE (1) TABLET(S) BY MOUTH EVERY SIX HOURS.
     Route: 048
     Dates: start: 20240126
  14. TROSPIUM [Concomitant]
     Active Substance: TROSPIUM
     Indication: Product used for unknown indication
     Route: 048
     Dates: start: 20240226
  15. VICKS SINEX [Concomitant]
     Active Substance: ACETAMINOPHEN\PHENYLEPHRINE HYDROCHLORIDE
     Indication: Product used for unknown indication
     Dosage: SPRAY 2 SPRAYS TWICE A DAY BY INTRANASAL ROUTE FOR 3 DAYS.
     Route: 045
     Dates: start: 20230125
  16. ALBUTEROL\IPRATROPIUM [Concomitant]
     Active Substance: ALBUTEROL\IPRATROPIUM
     Indication: Product used for unknown indication
     Dosage: IPRATROPIUM 0.5 MG-ALBUTEROL 3 MG (2.5 MG BASE)/3 ML NEBULIZATION SOLN
     Route: 065
     Dates: start: 20221116
  17. JANUMET [Concomitant]
     Active Substance: METFORMIN HYDROCHLORIDE\SITAGLIPTIN PHOSPHATE
     Indication: Product used for unknown indication
     Dosage: 50 MG-1,000 MG TABLET
     Route: 048
     Dates: start: 20240627
  18. LISINOPRIL AND HYDROCHLOROTHIAZIDE [Concomitant]
     Active Substance: HYDROCHLOROTHIAZIDE\LISINOPRIL
     Indication: Product used for unknown indication
     Dosage: TAKE ONE TABLET BY MOUTH EVERY DAY
     Route: 048
     Dates: start: 20240710
  19. MAGNESIUM OXIDE [Concomitant]
     Active Substance: MAGNESIUM OXIDE
     Indication: Product used for unknown indication
     Dosage: TAKE ONE (1) TABLET EVERY DAY BY MOUTH AT BEDTIME
     Route: 048
     Dates: start: 20231127
  20. MELOXICAM [Concomitant]
     Active Substance: MELOXICAM
     Indication: Product used for unknown indication
     Dosage: TAKE ONE (1) TABLET(S) BY MOUTH ONCE A DAY.
     Route: 048
     Dates: start: 20220111
  21. METHOCARBAMOL [Concomitant]
     Active Substance: METHOCARBAMOL
     Indication: Pain
     Dosage: TIME INTERVAL: 0.33333333 DAYS: TAKE ONE (1) TO TWO (2) TABLET(S) BY MOUTH THREE TIMES A DAY AS N...
     Route: 048
     Dates: start: 20240501
  22. MUCINEX [Concomitant]
     Active Substance: GUAIFENESIN
     Indication: Product used for unknown indication
     Dosage: MUCINEX DM 60 MG-1,200 MG TABLET,EXTENDED RELEASE 12 HR
     Route: 048
     Dates: start: 20231003
  23. ONDANSETRON [Concomitant]
     Active Substance: ONDANSETRON
     Indication: Nausea
     Route: 048
     Dates: start: 20230613
  24. OZEMPIC [Concomitant]
     Active Substance: SEMAGLUTIDE
     Indication: Product used for unknown indication
     Dosage: INJECT 0.25 MG EVERY WEEK BY SUBCUTANEOUS ROUTE.?INCREASE TO 0.5 MG AFTER 4 WEEKS
     Route: 058
     Dates: start: 20220522
  25. PANTOPRAZOLE [Concomitant]
     Active Substance: PANTOPRAZOLE
     Indication: Product used for unknown indication
     Dosage: TAKE ONE TABLET BY MOUTH EVERY DAY
     Route: 048
     Dates: start: 20240319
  26. POLYETHYLENE GLYCOL [Concomitant]
     Active Substance: POLYETHYLENE GLYCOL
     Indication: Product used for unknown indication
     Dosage: TAKE 17 GRAMS EVERY DAY BY ORAL ROUTE.
     Route: 048
     Dates: start: 20220331
  27. HYDROCORTISONE [Concomitant]
     Active Substance: HYDROCORTISONE\HYDROCORTISONE ACETATE
     Indication: Product used for unknown indication
     Dosage: UNWRAP AND INSERT ONE (1) SUPPOSITORY(IES) RECTALLY TWICE A DAY FOR 14 DAYS.
     Route: 054
     Dates: start: 20240501
  28. HYDROXYZINE [Concomitant]
     Active Substance: HYDROXYZINE HYDROCHLORIDE
     Indication: Product used for unknown indication
     Dosage: TAKE ONE (1) CAPSULE(S) BY MOUTH FOUR TIMES A DAY AS NEEDED
     Route: 048
     Dates: start: 20220818
  29. IBUPROFEN [Concomitant]
     Active Substance: IBUPROFEN
     Indication: Product used for unknown indication
     Dosage: TAKE ONE (1) TABLET(S) BY MOUTH THREE TIMES A DAY AS NEEDED.
     Route: 048
     Dates: start: 20230108
  30. PRAVASTATIN [Concomitant]
     Active Substance: PRAVASTATIN
     Indication: Product used for unknown indication
     Route: 048
  31. PRAVASTATIN [Concomitant]
     Active Substance: PRAVASTATIN
     Indication: Product used for unknown indication
     Route: 048
     Dates: start: 20240215
  32. SERTRALINE [Concomitant]
     Active Substance: SERTRALINE HYDROCHLORIDE
     Indication: Product used for unknown indication
     Dosage: TAKE 0.5 TABLETS EVERY DAY BY ORAL ROUTE.
     Route: 048
     Dates: start: 20240603
  33. SULFAMETHOXAZOLE\TRIMETHOPRIM [Concomitant]
     Active Substance: SULFAMETHOXAZOLE\TRIMETHOPRIM
     Indication: Product used for unknown indication
     Dosage: SULFAMETHOXAZOLE 400 MG-TRIMETHOPRIM 80 MG TABLET?TAKE 0.5 TABLETS EVERY DAY BY ORAL ROUTE FOR 30...
     Route: 048
     Dates: start: 20240722
  34. FLUCONAZOLE F [Concomitant]
     Indication: Product used for unknown indication
     Dosage: TAKE ONE (1) TABLET(S) BY MOUTH DAIL
     Route: 048
     Dates: start: 20240708
  35. FLUTICASONE [Concomitant]
     Active Substance: FLUTICASONE
     Indication: Product used for unknown indication
     Dosage: INSTILL ONE (1) SPRAY INTO EACH NOSTRIL TWICE DAILY FOR 5 DAYS AS DIRECTED
     Route: 045
     Dates: start: 20230125
  36. GABAPENTIN [Concomitant]
     Active Substance: GABAPENTIN
     Indication: Product used for unknown indication
     Route: 048
     Dates: start: 20231226
  37. GAS-X [Concomitant]
     Active Substance: DIMETHICONE
     Indication: Product used for unknown indication
     Dosage: TIME INTERVAL: AS NECESSARY
     Route: 065
     Dates: start: 20211210

REACTIONS (5)
  - Adenocarcinoma of colon [Unknown]
  - Colon cancer [Recovering/Resolving]
  - Pelvic adhesions [Unknown]
  - Ovarian adhesion [Unknown]
  - Hysterectomy [Unknown]

NARRATIVE: CASE EVENT DATE: 20230408
